FAERS Safety Report 8922836 (Version 1)
Quarter: 2012Q4

REPORT INFORMATION
  Report Type: Spontaneous
  Country: US (occurrence: None)
  Receive Date: 20121115
  Receipt Date: 20121115
  Transmission Date: 20130627
  Serious: Yes (Disabling, Other)
  Sender: FDA-Public Use
  Company Number: None

PATIENT
  Age: 38 Year
  Sex: Male
  Weight: 86.18 kg

DRUGS (4)
  1. ZYVOX [Suspect]
     Indication: ABDOMINAL INFECTION
     Route: 042
     Dates: start: 20050930, end: 20051030
  2. ZYVOX [Suspect]
     Route: 042
     Dates: start: 20050930, end: 20051030
  3. ZYVOX [Suspect]
     Indication: ABDOMINAL INFECTION
     Route: 048
     Dates: start: 20051001, end: 20051030
  4. ZYVOX [Suspect]
     Route: 048
     Dates: start: 20051001, end: 20051030

REACTIONS (3)
  - Neuropathy peripheral [None]
  - Pain [None]
  - Platelet count decreased [None]
